FAERS Safety Report 21993783 (Version 1)
Quarter: 2023Q1

REPORT INFORMATION
  Report Type: Spontaneous
  Country: GB (occurrence: GB)
  Receive Date: 20230215
  Receipt Date: 20230215
  Transmission Date: 20230417
  Serious: Yes (Hospitalization, Other)
  Sender: FDA-Public Use
  Company Number: GB-ALLERGAN-2304025US

PATIENT
  Age: 53 Year
  Sex: Male

DRUGS (2)
  1. ACITRETIN [Suspect]
     Active Substance: ACITRETIN
     Indication: Psoriasis
     Dosage: 20 MILLIGRAM DAILY;
     Route: 065
  2. ACITRETIN [Suspect]
     Active Substance: ACITRETIN
     Route: 065

REACTIONS (3)
  - Cutaneous vasculitis [Recovered/Resolved]
  - Vasculitis gastrointestinal [Recovered/Resolved]
  - Rosacea [Unknown]
